FAERS Safety Report 7097570-4 (Version None)
Quarter: 2010Q4

REPORT INFORMATION
  Report Type: 
  Country: None (occurrence: None)
  Receive Date: 20101111
  Receipt Date: 20101029
  Transmission Date: 20110411
  Serious: Yes (Other)
  Sender: FDA-Public Use
  Company Number: GB-MYLANLABS-2010S1019987

PATIENT
  Age: 50 None
  Sex: Female

DRUGS (3)
  1. MIRTAZAPINE [Suspect]
     Indication: DEPRESSION
     Route: 048
     Dates: start: 20100827
  2. CITALOPRAM [Concomitant]
     Indication: DEPRESSION
     Route: 048
  3. SYMBICORT [Concomitant]
     Indication: ASTHMA
     Route: 055
     Dates: start: 20081201

REACTIONS (2)
  - PHARYNGEAL OEDEMA [None]
  - SWOLLEN TONGUE [None]
